FAERS Safety Report 14262487 (Version 3)
Quarter: 2018Q1

REPORT INFORMATION
  Report Type: Spontaneous
  Country: AU (occurrence: AU)
  Receive Date: 20171208
  Receipt Date: 20180206
  Transmission Date: 20180508
  Serious: Yes (Other)
  Sender: FDA-Public Use
  Company Number: AU-CONCORDIA PHARMACEUTICALS INC.-E2B_00008530

PATIENT
  Age: 84 Year
  Sex: Female

DRUGS (26)
  1. CICLOSPORIN [Suspect]
     Active Substance: CYCLOSPORINE
     Indication: PUSTULAR PSORIASIS
     Dates: start: 201102
  2. METFORMIN [Concomitant]
     Active Substance: METFORMIN HYDROCHLORIDE
  3. PREDNISOLONE. [Suspect]
     Active Substance: PREDNISOLONE
     Indication: PUSTULAR PSORIASIS
     Dates: start: 201102
  4. PREDNISOLONE. [Suspect]
     Active Substance: PREDNISOLONE
     Indication: PUSTULAR PSORIASIS
  5. VITAMIN D [Concomitant]
     Active Substance: CHOLECALCIFEROL
     Indication: SUPPLEMENTATION THERAPY
  6. METHOTREXATE. [Concomitant]
     Active Substance: METHOTREXATE
     Indication: PUSTULAR PSORIASIS
     Dates: start: 2009
  7. POTASSIUM [Concomitant]
     Active Substance: POTASSIUM
  8. POTASSIUM IODIDE. [Concomitant]
     Active Substance: POTASSIUM IODIDE
     Dosage: SATURATED SOLUTION
     Route: 061
     Dates: start: 2010
  9. USTEKINUMAB [Concomitant]
     Active Substance: USTEKINUMAB
     Indication: PUSTULAR PSORIASIS
     Dates: start: 2010
  10. THALIDOMIDE [Concomitant]
     Active Substance: THALIDOMIDE
     Indication: PUSTULAR PSORIASIS
  11. MICONAZOLE 2% [Concomitant]
     Active Substance: MICONAZOLE
     Dosage: SOLUTION
     Route: 061
     Dates: start: 2010
  12. CICLOSPORIN [Suspect]
     Active Substance: CYCLOSPORINE
     Indication: PUSTULAR PSORIASIS
  13. USTEKINUMAB [Suspect]
     Active Substance: USTEKINUMAB
     Indication: PUSTULAR PSORIASIS
     Dates: start: 201102
  14. USTEKINUMAB [Suspect]
     Active Substance: USTEKINUMAB
     Indication: PUSTULAR PSORIASIS
  15. USTEKINUMAB [Suspect]
     Active Substance: USTEKINUMAB
     Indication: PUSTULAR PSORIASIS
  16. USTEKINUMAB [Concomitant]
     Active Substance: USTEKINUMAB
     Indication: PUSTULAR PSORIASIS
  17. THALIDOMIDE [Concomitant]
     Active Substance: THALIDOMIDE
     Indication: PUSTULAR PSORIASIS
     Dates: start: 2010
  18. METHOTREXATE. [Concomitant]
     Active Substance: METHOTREXATE
     Indication: PUSTULAR PSORIASIS
  19. CALCIPOTRIOL, BETAMETHASONE DIPROPIONATE [Concomitant]
     Route: 061
     Dates: start: 2010
  20. FOLIC ACID. [Concomitant]
     Active Substance: FOLIC ACID
     Indication: PUSTULAR PSORIASIS
     Dosage: ON THE FOLLOWING DAY
     Dates: start: 2009
  21. FOLIC ACID. [Concomitant]
     Active Substance: FOLIC ACID
     Indication: PUSTULAR PSORIASIS
  22. USTEKINUMAB [Concomitant]
     Active Substance: USTEKINUMAB
     Indication: PUSTULAR PSORIASIS
  23. FRUSEMIDE [Concomitant]
     Active Substance: FUROSEMIDE
  24. USTEKINUMAB [Suspect]
     Active Substance: USTEKINUMAB
     Indication: PUSTULAR PSORIASIS
  25. USTEKINUMAB [Concomitant]
     Active Substance: USTEKINUMAB
     Indication: PUSTULAR PSORIASIS
     Dates: start: 201102
  26. LISINOPRIL. [Concomitant]
     Active Substance: LISINOPRIL

REACTIONS (2)
  - Hypertension [Unknown]
  - Renal impairment [Unknown]

NARRATIVE: CASE EVENT DATE: 201102
